FAERS Safety Report 18229589 (Version 1)
Quarter: 2020Q3

REPORT INFORMATION
  Report Type: Spontaneous
  Country: AU (occurrence: AU)
  Receive Date: 20200903
  Receipt Date: 20200903
  Transmission Date: 20201103
  Serious: Yes (Hospitalization)
  Sender: FDA-Public Use
  Company Number: AU-MYLANLABS-2020M1076235

PATIENT
  Age: 42 Year
  Sex: Female

DRUGS (1)
  1. ETHINYLESTRADIOL/LEVONORGESTREL [Suspect]
     Active Substance: ETHINYL ESTRADIOL\LEVONORGESTREL
     Indication: ORAL CONTRACEPTION
     Dosage: FORMULATION: PILL
     Route: 048

REACTIONS (5)
  - Deep vein thrombosis [Recovered/Resolved]
  - Peripheral ischaemia [Recovered/Resolved]
  - Pulmonary embolism [Recovered/Resolved]
  - Peripheral artery occlusion [Recovered/Resolved]
  - Paradoxical embolism [Recovered/Resolved]
